FAERS Safety Report 8449930-4 (Version None)
Quarter: 2012Q2

REPORT INFORMATION
  Report Type: 
  Country: None (occurrence: None)
  Receive Date: 20120620
  Receipt Date: 20120615
  Transmission Date: 20120825
  Serious: Yes (Other)
  Sender: FDA-Public Use
  Company Number: PHHY2012BE050649

PATIENT
  Age: 61 Year
  Sex: Female

DRUGS (7)
  1. TRAZODONE HCL [Concomitant]
     Dosage: 50 MG, DAILY
  2. STEOVIT FORTE [Concomitant]
     Dosage: 1000 MG /800 U ONCE DAILY
  3. MOVIPREP [Concomitant]
  4. AFINITOR [Suspect]
     Dosage: 10 MG, QD
     Dates: start: 20090101
  5. PHENOBARBITAL TAB [Concomitant]
     Dosage: 100 MG, QD
  6. KEPPRA [Concomitant]
     Dosage: 500 MG, BID
  7. FOLAVIT [Concomitant]
     Dosage: 4 MG, DAILY

REACTIONS (2)
  - MITRAL VALVE INCOMPETENCE [None]
  - PLEURAL EFFUSION [None]
